FAERS Safety Report 7004216-X (Version None)
Quarter: 2010Q3

REPORT INFORMATION
  Report Type: 
  Country: None (occurrence: None)
  Receive Date: 20100920
  Receipt Date: 20100222
  Transmission Date: 20110219
  Serious: No
  Sender: FDA-Public Use
  Company Number: US-WYE-H13778010

PATIENT
  Sex: Female

DRUGS (2)
  1. PRISTIQ [Suspect]
  2. PRISTIQ [Suspect]

REACTIONS (1)
  - DISTURBANCE IN SEXUAL AROUSAL [None]
